FAERS Safety Report 7019713-0 (Version None)
Quarter: 2010Q3

REPORT INFORMATION
  Report Type: 
  Country: None (occurrence: None)
  Receive Date: 20100929
  Receipt Date: 20100915
  Transmission Date: 20110219
  Serious: Yes (Other)
  Sender: FDA-Public Use
  Company Number: ES-PAR PHARMACEUTICAL, INC-2010SCPR001389

PATIENT
  Age: 65 Year
  Sex: Female

DRUGS (4)
  1. DOXYCYCLINE [Suspect]
     Indication: RESPIRATORY TRACT INFECTION
     Dosage: 100 MG, EVERY 12 HOURS
     Route: 048
  2. COTRIM [Suspect]
     Indication: RESPIRATORY TRACT INFECTION
     Dosage: 80 MG/ 400 MG EVERY 12H
     Route: 048
  3. SERTRALINE HYDROCHLORIDE [Suspect]
     Indication: RESPIRATORY TRACT INFECTION
     Dosage: 500 MG, EVERY 24 HR
     Route: 048
  4. SERTRALINE HYDROCHLORIDE [Suspect]
     Indication: AFFECTIVE DISORDER
     Dosage: 50 MG, EVERY 24 HR
     Route: 065

REACTIONS (7)
  - ASTHENIA [None]
  - CHOLESTASIS [None]
  - CYTOLYTIC HEPATITIS [None]
  - DECREASED APPETITE [None]
  - FAECES PALE [None]
  - HEPATITIS TOXIC [None]
  - PRURITUS GENERALISED [None]
